FAERS Safety Report 19811137 (Version 2)
Quarter: 2021Q3

REPORT INFORMATION
  Report Type: Spontaneous
  Country: US (occurrence: US)
  Receive Date: 20210909
  Receipt Date: 20210924
  Transmission Date: 20211014
  Serious: No
  Sender: FDA-Public Use
  Company Number: US-GLAXOSMITHKLINE-USCH2021060531

PATIENT
  Age: 80 Year

DRUGS (1)
  1. VOLTAREN ARTHRITIS PAIN [Suspect]
     Active Substance: DICLOFENAC SODIUM
     Indication: PAIN
     Dosage: UNK
     Dates: start: 2021, end: 2021

REACTIONS (4)
  - Product use issue [Unknown]
  - Condition aggravated [Recovering/Resolving]
  - Blister [Recovering/Resolving]
  - Application site rash [Recovering/Resolving]
